FAERS Safety Report 9748327 (Version 2)
Quarter: 2014Q1

REPORT INFORMATION
  Report Type: Report from Study
  Country: BR (occurrence: BR)
  Receive Date: 20131212
  Receipt Date: 20140108
  Transmission Date: 20141002
  Serious: Yes (Hospitalization, Other)
  Sender: FDA-Public Use
  Company Number: PHHY2013BR144062

PATIENT
  Sex: Male

DRUGS (6)
  1. EXELON PATCH [Suspect]
     Indication: DEMENTIA ALZHEIMER^S TYPE
     Dosage: 10 CM (9.5MG/24HOURS), DAILY
     Route: 062
     Dates: end: 201312
  2. NEOZINE [Concomitant]
     Indication: AGGRESSION
     Dosage: 20 DROPS DAILY
     Dates: start: 201312
  3. CLONAZEPAM [Concomitant]
     Indication: NERVOUSNESS
     Dosage: 1 DF DAILY
     Route: 048
     Dates: start: 201312
  4. HALDOL [Concomitant]
     Indication: PSYCHOTIC DISORDER
     Dosage: 0.5 DF DAILY
     Route: 048
     Dates: start: 201312
  5. FENERGAN [Concomitant]
     Indication: INSOMNIA
     Dosage: 1 DF DAILY
     Route: 048
  6. CALCIO + D [Concomitant]
     Indication: BONE DISORDER
     Dosage: 1 DF DAILY
     Route: 048
     Dates: start: 201312

REACTIONS (1)
  - Aggression [Recovered/Resolved]
